FAERS Safety Report 7416376-7 (Version None)
Quarter: 2011Q2

REPORT INFORMATION
  Report Type: 
  Country: None (occurrence: None)
  Receive Date: 20110414
  Receipt Date: 20110406
  Transmission Date: 20111010
  Serious: Yes (Other)
  Sender: FDA-Public Use
  Company Number: US-US-EMD SERONO, INC.-7052686

PATIENT
  Sex: Female

DRUGS (3)
  1. REBIF [Suspect]
     Route: 058
     Dates: start: 20110325, end: 20110101
  2. REBIF [Suspect]
     Indication: MULTIPLE SCLEROSIS
     Route: 058
     Dates: start: 20070101
  3. REBIF [Suspect]
     Route: 058
     Dates: start: 20110401

REACTIONS (3)
  - INFLUENZA LIKE ILLNESS [None]
  - THYROIDECTOMY [None]
  - HYPERTENSION [None]
